FAERS Safety Report 10235001 (Version 2)
Quarter: 2014Q2

REPORT INFORMATION
  Report Type: Spontaneous
  Country: CN (occurrence: CN)
  Receive Date: 20140613
  Receipt Date: 20140627
  Transmission Date: 20141212
  Serious: Yes (Other)
  Sender: FDA-Public Use
  Company Number: CN-JNJFOC-20140605546

PATIENT
  Age: 9 Year
  Sex: Male

DRUGS (3)
  1. CONCERTA [Suspect]
     Indication: PSYCHOMOTOR HYPERACTIVITY
     Route: 048
  2. CONCERTA [Suspect]
     Indication: PSYCHOMOTOR HYPERACTIVITY
     Route: 048
  3. CONCERTA [Suspect]
     Indication: PSYCHOMOTOR HYPERACTIVITY
     Route: 048
     Dates: start: 2012

REACTIONS (2)
  - Psoriasis [Not Recovered/Not Resolved]
  - Mood altered [Recovered/Resolved]
